FAERS Safety Report 6197021-8 (Version None)
Quarter: 2009Q2

REPORT INFORMATION
  Report Type: 
  Country: None (occurrence: None)
  Receive Date: 20090520
  Receipt Date: 20090516
  Transmission Date: 20091009
  Serious: Yes (Death, Life-Threatening, Hospitalization)
  Sender: FDA-Public Use
  Company Number: SG-WYE-H09385409

PATIENT
  Sex: Male
  Weight: 69 kg

DRUGS (5)
  1. NEXAVAR [Suspect]
     Indication: METASTATIC RENAL CELL CARCINOMA
     Route: 048
     Dates: start: 20090505, end: 20090516
  2. DICLOFENAC [Concomitant]
     Indication: BACK PAIN
     Dosage: NOT PROVIDED
     Route: 065
     Dates: start: 20090511, end: 20090516
  3. TRAMADOL HCL [Concomitant]
     Indication: BACK PAIN
     Dosage: NOT PROVIDED
     Route: 065
     Dates: start: 20090424, end: 20090516
  4. ENOXAPARIN SODIUM [Concomitant]
     Indication: PULMONARY EMBOLISM
     Dosage: NOT PROVIDED
     Route: 065
     Dates: start: 20090428, end: 20090516
  5. ACETAMINOPHEN [Concomitant]
     Indication: BACK PAIN
     Dosage: NOT PROVIDED
     Route: 065
     Dates: start: 20090428, end: 20090516

REACTIONS (3)
  - DYSPNOEA [None]
  - RESPIRATORY ARREST [None]
  - UNRESPONSIVE TO STIMULI [None]
